FAERS Safety Report 19327517 (Version 2)
Quarter: 2021Q3

REPORT INFORMATION
  Report Type: Report from Study
  Country: US (occurrence: US)
  Receive Date: 20210528
  Receipt Date: 20210819
  Transmission Date: 20211014
  Serious: Yes (Death)
  Sender: FDA-Public Use
  Company Number: US-EMD SERONO-9240428

PATIENT
  Sex: Female

DRUGS (1)
  1. MAVENCLAD [Suspect]
     Active Substance: CLADRIBINE
     Indication: MULTIPLE SCLEROSIS
     Route: 048
     Dates: start: 20200522

REACTIONS (1)
  - Death [Fatal]
